FAERS Safety Report 5528523-2 (Version None)
Quarter: 2007Q4

REPORT INFORMATION
  Report Type: 
  Country: None (occurrence: None)
  Receive Date: 20071123
  Receipt Date: 20071108
  Transmission Date: 20080405
  Serious: Yes (Other)
  Sender: FDA-Public Use
  Company Number: PHO-2007-053

PATIENT
  Age: 51 Year
  Sex: Female

DRUGS (3)
  1. PHOTOFRIN [Suspect]
     Indication: DISEASE RECURRENCE
     Dosage: 2MG/KG
     Route: 042
  2. PHOTOFRIN [Suspect]
     Indication: GLIOMA
     Dosage: 2MG/KG
     Route: 042
  3. INTRALIPID R (LIPID SOLUTION) [Concomitant]

REACTIONS (3)
  - CRANIAL NERVE INJURY [None]
  - FACIAL PALSY [None]
  - IATROGENIC INJURY [None]
